FAERS Safety Report 17426365 (Version 6)
Quarter: 2020Q2

REPORT INFORMATION
  Report Type: Spontaneous
  Country: US (occurrence: US)
  Receive Date: 20200217
  Receipt Date: 20200504
  Transmission Date: 20200713
  Serious: Yes (Other)
  Sender: FDA-Public Use
  Company Number: US-PFIZER INC-2020067128

PATIENT
  Age: 70 Year
  Sex: Female
  Weight: 66 kg

DRUGS (1)
  1. IBRANCE [Suspect]
     Active Substance: PALBOCICLIB
     Indication: BREAST CANCER METASTATIC
     Dosage: 125 MG, CYCLIC (21 DAYS; THEN OFF FOR 7 DAYS)
     Route: 048
     Dates: start: 202001

REACTIONS (7)
  - Bone pain [Unknown]
  - Red blood cell count increased [Unknown]
  - Pulmonary oedema [Unknown]
  - Weight decreased [Unknown]
  - Emotional disorder [Unknown]
  - Neoplasm progression [Unknown]
  - Nausea [Unknown]

NARRATIVE: CASE EVENT DATE: 2020
